FAERS Safety Report 17842486 (Version 4)
Quarter: 2021Q1

REPORT INFORMATION
  Report Type: Report from Study
  Country: US (occurrence: US)
  Receive Date: 20200529
  Receipt Date: 20210108
  Transmission Date: 20210419
  Serious: Yes (Death, Other)
  Sender: FDA-Public Use
  Company Number: NVSC2020US148886

PATIENT
  Age: 85 Year
  Sex: Female

DRUGS (1)
  1. PROMACTA [Suspect]
     Active Substance: ELTROMBOPAG OLAMINE
     Indication: THROMBOCYTOPENIA
     Dosage: UNK UNK, TID
     Route: 048
     Dates: start: 202005

REACTIONS (6)
  - Feeling hot [Unknown]
  - Hypoacusis [Unknown]
  - General physical health deterioration [Unknown]
  - Thrombosis [Not Recovered/Not Resolved]
  - Death [Fatal]
  - Pain in extremity [Unknown]

NARRATIVE: CASE EVENT DATE: 20200527
